FAERS Safety Report 7995118-0 (Version None)
Quarter: 2011Q4

REPORT INFORMATION
  Report Type: 
  Country: None (occurrence: None)
  Receive Date: 20111220
  Receipt Date: 20111219
  Transmission Date: 20120403
  Serious: Yes (Other)
  Sender: FDA-Public Use
  Company Number: US-GLAXOSMITHKLINE-A0946603A

PATIENT
  Age: 48 Year
  Sex: Male

DRUGS (2)
  1. FLOVENT [Suspect]
     Indication: ASTHMA
     Dosage: 2PUFF TWICE PER DAY
     Route: 055
  2. XOPENEX [Concomitant]

REACTIONS (4)
  - DYSPNOEA [None]
  - INHALATION THERAPY [None]
  - CHEST DISCOMFORT [None]
  - ASTHMA [None]
